FAERS Safety Report 17323997 (Version 4)
Quarter: 2020Q1

REPORT INFORMATION
  Report Type: Spontaneous
  Country: CH (occurrence: CH)
  Receive Date: 20200127
  Receipt Date: 20200226
  Transmission Date: 20200409
  Serious: Yes (Other)
  Sender: FDA-Public Use
  Company Number: CH-ROCHE-2526985

PATIENT
  Sex: Female

DRUGS (4)
  1. IMUREK [AZATHIOPRINE] [Suspect]
     Active Substance: AZATHIOPRINE
     Indication: COLLAGEN DISORDER
     Dosage: 75 MG/DAY
     Route: 065
     Dates: start: 2013, end: 201809
  2. IMUREK [AZATHIOPRINE] [Suspect]
     Active Substance: AZATHIOPRINE
     Indication: POLYARTHRITIS
  3. ACTEMRA [Suspect]
     Active Substance: TOCILIZUMAB
     Indication: POLYARTHRITIS
  4. ACTEMRA [Suspect]
     Active Substance: TOCILIZUMAB
     Indication: COLLAGEN DISORDER
     Route: 042
     Dates: start: 20190226

REACTIONS (1)
  - Basal cell carcinoma [Recovered/Resolved]

NARRATIVE: CASE EVENT DATE: 20190402
